FAERS Safety Report 4548727-5 (Version None)
Quarter: 2005Q1

REPORT INFORMATION
  Report Type: 
  Country: None (occurrence: None)
  Receive Date: 20050106
  Receipt Date: 20050106
  Transmission Date: 20050727
  Serious: Yes (Hospitalization)
  Sender: FDA-Public Use
  Company Number: None

PATIENT
  Age: 73 Year
  Sex: Female
  Weight: 51.4833 kg

DRUGS (4)
  1. AVASTIN [Suspect]
     Indication: COLON CANCER METASTATIC
     Dosage: 269MG Q 2 WK IV
     Route: 042
     Dates: start: 20041206
  2. OXALIPLATIN [Suspect]
     Dosage: 134 MG
     Dates: start: 20041206
  3. LEUCOVORIN [Suspect]
     Dosage: 628 MG
  4. FLUOROURACIL [Suspect]
     Dosage: 3768 MG
     Dates: start: 20041206, end: 20041208

REACTIONS (6)
  - ABDOMINAL DISCOMFORT [None]
  - COUGH [None]
  - DRUG EFFECT DECREASED [None]
  - DRUG TOLERANCE DECREASED [None]
  - GASTROINTESTINAL TOXICITY [None]
  - NEOPLASM [None]
